FAERS Safety Report 13958683 (Version 4)
Quarter: 2019Q3

REPORT INFORMATION
  Report Type: Report from Study
  Country: CA (occurrence: CA)
  Receive Date: 20170912
  Receipt Date: 20190806
  Transmission Date: 20191004
  Serious: Yes (Other)
  Sender: FDA-Public Use
  Company Number: CA-ROCHE-1785978

PATIENT
  Age: 62 Year
  Sex: Female
  Weight: 79.4 kg

DRUGS (16)
  1. DIPHENHYDRAMINE HCL [Concomitant]
     Active Substance: DIPHENHYDRAMINE HYDROCHLORIDE
     Indication: OFF LABEL USE
  2. PLAQUENIL [Concomitant]
     Active Substance: HYDROXYCHLOROQUINE SULFATE
     Indication: OFF LABEL USE
  3. RITUXAN [Suspect]
     Active Substance: RITUXIMAB
     Indication: OFF LABEL USE
  4. EXEMESTANE. [Concomitant]
     Active Substance: EXEMESTANE
     Indication: OFF LABEL USE
  5. PSYLLIUM FIBRE [Concomitant]
     Indication: OFF LABEL USE
  6. RITUXAN [Suspect]
     Active Substance: RITUXIMAB
     Indication: RHEUMATOID ARTHRITIS
     Dosage: DAY 1 AND 15?ON 03/NOV/2017, RECENT INFUSION OF RITUXIAMB
     Route: 042
     Dates: start: 20160627
  7. SYNTHROID [Concomitant]
     Active Substance: LEVOTHYROXINE SODIUM
     Indication: OFF LABEL USE
  8. CELEBREX [Concomitant]
     Active Substance: CELECOXIB
     Indication: OFF LABEL USE
  9. TECTA [Concomitant]
     Active Substance: PANTOPRAZOLE MAGNESIUM
     Indication: OFF LABEL USE
  10. ACETAMINOPHEN. [Concomitant]
     Active Substance: ACETAMINOPHEN
     Indication: PREMEDICATION
     Route: 048
     Dates: start: 20160627
  11. METHYLPREDNISOLONE. [Concomitant]
     Active Substance: METHYLPREDNISOLONE
     Indication: PREMEDICATION
     Route: 042
     Dates: start: 20160627
  12. ACETAMINOPHEN. [Concomitant]
     Active Substance: ACETAMINOPHEN
     Indication: OFF LABEL USE
  13. METHYLPREDNISOLONE. [Concomitant]
     Active Substance: METHYLPREDNISOLONE
     Indication: OFF LABEL USE
  14. TYLENOL [Concomitant]
     Active Substance: ACETAMINOPHEN
     Indication: ARTHRITIS
     Route: 065
  15. TYLENOL [Concomitant]
     Active Substance: ACETAMINOPHEN
     Indication: OFF LABEL USE
  16. DIPHENHYDRAMINE HCL [Concomitant]
     Active Substance: DIPHENHYDRAMINE HYDROCHLORIDE
     Indication: PREMEDICATION
     Route: 048
     Dates: start: 20160627

REACTIONS (10)
  - Throat tightness [Recovered/Resolved]
  - Fibromyalgia [Not Recovered/Not Resolved]
  - Off label use [Unknown]
  - Pharyngeal swelling [Recovered/Resolved]
  - Blood pressure fluctuation [Unknown]
  - Weight decreased [Recovering/Resolving]
  - Musculoskeletal stiffness [Unknown]
  - Ear pruritus [Recovered/Resolved]
  - Arthralgia [Unknown]
  - Intentional product use issue [Unknown]

NARRATIVE: CASE EVENT DATE: 20160627
